FAERS Safety Report 7894051-2 (Version None)
Quarter: 2011Q4

REPORT INFORMATION
  Report Type: 
  Country: None (occurrence: None)
  Receive Date: 20111104
  Receipt Date: 20111031
  Transmission Date: 20120403
  Serious: Yes (Life-Threatening, Hospitalization, Disabling, Other)
  Sender: FDA-Public Use
  Company Number: FR-ABBOTT-08P-056-0468813-00

PATIENT
  Sex: Male

DRUGS (5)
  1. KALETRA [Suspect]
     Indication: HIV INFECTION
     Dosage: 200/50MG (UNIT DOSE)
     Route: 048
     Dates: start: 20080205, end: 20080228
  2. RALTEGRAVIR [Concomitant]
     Indication: PRODUCT USED FOR UNKNOWN INDICATION
     Dates: start: 20090115
  3. MARAVIROC [Concomitant]
     Indication: PRODUCT USED FOR UNKNOWN INDICATION
     Dates: start: 20090115
  4. ENFUVIRTIDE [Concomitant]
     Indication: PRODUCT USED FOR UNKNOWN INDICATION
     Dates: start: 20090115
  5. TRUVADA [Suspect]
     Indication: HIV INFECTION
     Dosage: 200MG/245MG (UNIT DOSE)
     Route: 048
     Dates: start: 20080205, end: 20080228

REACTIONS (5)
  - EYE INFECTION [None]
  - QUALITY OF LIFE DECREASED [None]
  - STEVENS-JOHNSON SYNDROME [None]
  - COMA [None]
  - CORNEAL DISORDER [None]
